FAERS Safety Report 18643997 (Version 1)
Quarter: 2020Q4

REPORT INFORMATION
  Report Type: Spontaneous
  Country: US (occurrence: US)
  Receive Date: 20201221
  Receipt Date: 20201221
  Transmission Date: 20210114
  Serious: No
  Sender: FDA-Public Use
  Company Number: US-BIOHAVEN PHARMACEUTICALS-2020BHV00510

PATIENT
  Sex: Female
  Weight: 63.49 kg

DRUGS (11)
  1. HYDROCODONE [Concomitant]
     Active Substance: HYDROCODONE
  2. ^VISOL^ [Concomitant]
  3. DULOXETINE. [Concomitant]
     Active Substance: DULOXETINE
  4. VITAMIN D [Concomitant]
     Active Substance: VITAMIN D NOS
  5. ESTER-C [Concomitant]
  6. LEVOTHYROXINE. [Concomitant]
     Active Substance: LEVOTHYROXINE
  7. NURTEC ODT [Suspect]
     Active Substance: RIMEGEPANT SULFATE
     Indication: MIGRAINE
     Dosage: 75 MG, AS NEEDED
     Route: 048
     Dates: start: 202005
  8. ESTRADIOL. [Concomitant]
     Active Substance: ESTRADIOL
  9. LIPITOR [Concomitant]
     Active Substance: ATORVASTATIN CALCIUM
  10. ALLEGRA [Concomitant]
     Active Substance: FEXOFENADINE HYDROCHLORIDE
  11. TOPIRAMATE. [Concomitant]
     Active Substance: TOPIRAMATE

REACTIONS (6)
  - Rash pruritic [Not Recovered/Not Resolved]
  - Middle insomnia [Not Recovered/Not Resolved]
  - Unevaluable event [Unknown]
  - Rash erythematous [Not Recovered/Not Resolved]
  - Pain of skin [Not Recovered/Not Resolved]
  - Initial insomnia [Not Recovered/Not Resolved]

NARRATIVE: CASE EVENT DATE: 2020
